FAERS Safety Report 18231992 (Version 2)
Quarter: 2020Q4

REPORT INFORMATION
  Report Type: Spontaneous
  Country: US (occurrence: US)
  Receive Date: 20200904
  Receipt Date: 20201005
  Transmission Date: 20210113
  Serious: Yes (Disabling, Other)
  Sender: FDA-Public Use
  Company Number: US-PFIZER INC-2020342636

PATIENT
  Sex: Female

DRUGS (1)
  1. TIKOSYN [Suspect]
     Active Substance: DOFETILIDE
     Indication: ATRIAL FIBRILLATION
     Dosage: 6 DOAGE FORMS (ON SIX DOSES OVER THE COURSE OF THREE DAYS)

REACTIONS (2)
  - Injury [Unknown]
  - Electrocardiogram QT prolonged [Unknown]
